FAERS Safety Report 18335318 (Version 2)
Quarter: 2020Q4

REPORT INFORMATION
  Report Type: Spontaneous
  Country: JP (occurrence: JP)
  Receive Date: 20201001
  Receipt Date: 20201117
  Transmission Date: 20210113
  Serious: Yes (Other)
  Sender: FDA-Public Use
  Company Number: NVSJ2020JP008184

PATIENT
  Age: 67 Year
  Sex: Male
  Weight: 72.5 kg

DRUGS (3)
  1. BEOVU [Suspect]
     Active Substance: BROLUCIZUMAB-DBLL
     Dosage: 6MG, LEFT EYE
     Route: 031
     Dates: start: 20200710, end: 20200710
  2. BEOVU [Suspect]
     Active Substance: BROLUCIZUMAB-DBLL
     Indication: AGE-RELATED MACULAR DEGENERATION
     Dosage: 6MG,RIGHT EYE
     Route: 031
     Dates: start: 20200703, end: 20200703
  3. EYLEA [Suspect]
     Active Substance: AFLIBERCEPT
     Indication: PRODUCT USED FOR UNKNOWN INDICATION
     Dosage: ABOUT 30 TIMES
     Route: 065

REACTIONS (6)
  - Vitritis [Not Recovered/Not Resolved]
  - Keratic precipitates [Recovered/Resolved]
  - Intraocular pressure increased [Recovered/Resolved]
  - Uveitis [Not Recovered/Not Resolved]
  - Vitreous floaters [Not Recovered/Not Resolved]
  - Ocular hyperaemia [Recovering/Resolving]

NARRATIVE: CASE EVENT DATE: 20200703
